FAERS Safety Report 6025216-2 (Version None)
Quarter: 2008Q4

REPORT INFORMATION
  Report Type: 
  Country: None (occurrence: None)
  Receive Date: 20081222
  Receipt Date: 20081105
  Transmission Date: 20090506
  Serious: No
  Sender: FDA-Public Use
  Company Number: ALL1-2008-03224

PATIENT
  Age: 39 Year
  Sex: Female
  Weight: 61.2 kg

DRUGS (5)
  1. VYVANSE [Suspect]
     Indication: ATTENTION DEFICIT/HYPERACTIVITY DISORDER
     Dosage: 1X/DAY:QD, ORAL
     Route: 048
     Dates: start: 20081015
  2. EFFEXOR XR [Concomitant]
  3. ALLEGRA D /01367401/ (FEXOFENADINE HYDROCHLORIDE, PSEUDOEPHEDRINE HYDR [Concomitant]
  4. ORTHO TRI-CYCLEN [Concomitant]
  5. ARAVA [Concomitant]

REACTIONS (1)
  - DRUG EFFECT DECREASED [None]
